FAERS Safety Report 6188509-4 (Version None)
Quarter: 2009Q2

REPORT INFORMATION
  Report Type: 
  Country: None (occurrence: None)
  Receive Date: 20090513
  Receipt Date: 20090210
  Transmission Date: 20091009
  Serious: Yes (Death)
  Sender: FDA-Public Use
  Company Number: ES-ALEXION-A200800450

PATIENT
  Sex: Male

DRUGS (1)
  1. SOLIRIS [Suspect]
     Indication: PERIPHERAL MOTOR NEUROPATHY
     Dosage: 600 MG, QWK
     Route: 042
     Dates: start: 20081001, end: 20081008

REACTIONS (1)
  - DEATH [None]
